FAERS Safety Report 19933684 (Version 1)
Quarter: 2021Q4

REPORT INFORMATION
  Report Type: Spontaneous
  Country: NL (occurrence: NL)
  Receive Date: 20211008
  Receipt Date: 20211008
  Transmission Date: 20220303
  Serious: Yes (Life-Threatening)
  Sender: FDA-Public Use
  Company Number: 2021A760655

PATIENT
  Age: 23740 Day
  Sex: Male

DRUGS (3)
  1. TICAGRELOR [Suspect]
     Active Substance: TICAGRELOR
     Indication: Angina pectoris
     Route: 048
     Dates: start: 20211003, end: 20211003
  2. VITAMIN C [Concomitant]
     Active Substance: ASCORBIC ACID
     Indication: Angina pectoris
     Dosage: 5 G
  3. ASPIRIN [Concomitant]
     Active Substance: ASPIRIN
     Indication: Angina pectoris
     Dosage: 1 G

REACTIONS (3)
  - Nasal congestion [Recovered/Resolved]
  - Aneurysm [Recovering/Resolving]
  - Confusional state [Recovering/Resolving]

NARRATIVE: CASE EVENT DATE: 20211003
